FAERS Safety Report 21657001 (Version 1)
Quarter: 2022Q4

REPORT INFORMATION
  Report Type: Spontaneous
  Country: US (occurrence: US)
  Receive Date: 20221129
  Receipt Date: 20221129
  Transmission Date: 20230112
  Serious: Yes (Hospitalization)
  Sender: FDA-Public Use
  Company Number: US-MYLANLABS-2022M1133160

PATIENT
  Age: 61 Year
  Sex: Male

DRUGS (15)
  1. GABAPENTIN [Suspect]
     Active Substance: GABAPENTIN
     Indication: Neuralgia
     Dosage: UNK
     Route: 065
  2. NORTRIPTYLINE [Suspect]
     Active Substance: NORTRIPTYLINE
     Indication: Neuralgia
     Dosage: UNK
     Route: 065
  3. DEXAMETHASONE [Suspect]
     Active Substance: DEXAMETHASONE
     Indication: Neuralgia
     Dosage: UNK (AT THE LEVEL BETWEEN THE FOURTH AND FIFTH LUMBAR VERTEBRA (L4-5))
     Route: 008
  4. LIDOCAINE [Suspect]
     Active Substance: LIDOCAINE
     Indication: Neuralgia
     Dosage: UNK
     Route: 061
  5. DULOXETINE [Suspect]
     Active Substance: DULOXETINE
     Indication: Neuralgia
     Dosage: UNK
     Route: 065
  6. OXYCODONE [Suspect]
     Active Substance: OXYCODONE
     Indication: Neuralgia
     Dosage: UNK
     Route: 065
  7. HYDROMORPHONE [Suspect]
     Active Substance: HYDROMORPHONE
     Indication: Neuralgia
     Dosage: UNK
     Route: 065
  8. CAPSAICIN [Suspect]
     Active Substance: CAPSAICIN
     Indication: Neuralgia
     Dosage: UNK
     Route: 061
  9. EMLA [Suspect]
     Active Substance: LIDOCAINE\PRILOCAINE
     Indication: Neuralgia
     Dosage: UNK
     Route: 061
  10. KETAMINE [Suspect]
     Active Substance: KETAMINE
     Indication: Neuralgia
     Dosage: UNK
     Route: 042
  11. BUPIVACAINE [Suspect]
     Active Substance: BUPIVACAINE
     Indication: Neuralgia
     Dosage: 0.25 PERCENT (AT THE LEVEL BETWEEN THE FOURTH AND FIFTH LUMBAR VERTEBRA (L4-5))
     Route: 008
  12. DEXAMETHASONE [Concomitant]
     Active Substance: DEXAMETHASONE
     Indication: Plasma cell myeloma
     Dosage: UNK
     Route: 065
  13. ACYCLOVIR [Concomitant]
     Active Substance: ACYCLOVIR
     Indication: Antiviral prophylaxis
     Dosage: UNK
     Route: 048
  14. LENALIDOMIDE [Concomitant]
     Active Substance: LENALIDOMIDE
     Indication: Plasma cell myeloma
     Dosage: UNK
     Route: 065
  15. BORTEZOMIB [Concomitant]
     Active Substance: BORTEZOMIB
     Indication: Plasma cell myeloma
     Dosage: UNK
     Route: 065

REACTIONS (1)
  - Treatment failure [Unknown]
